FAERS Safety Report 5269009-2 (Version None)
Quarter: 2007Q1

REPORT INFORMATION
  Report Type: 
  Country: None (occurrence: None)
  Receive Date: 20070319
  Receipt Date: 20070308
  Transmission Date: 20070707
  Serious: Yes (Other)
  Sender: FDA-Public Use
  Company Number: US-ROCHE-480410

PATIENT
  Age: 78 Year
  Sex: Female
  Weight: 54.9 kg

DRUGS (1)
  1. BONIVA [Suspect]
     Indication: OSTEOPOROSIS
     Route: 042
     Dates: start: 20061025

REACTIONS (2)
  - DEAFNESS NEUROSENSORY [None]
  - EAR PAIN [None]
